FAERS Safety Report 6250423-3 (Version None)
Quarter: 2009Q2

REPORT INFORMATION
  Report Type: 
  Country: None (occurrence: None)
  Receive Date: 20090626
  Receipt Date: 20090615
  Transmission Date: 20091009
  Serious: Yes (Hospitalization)
  Sender: FDA-Public Use
  Company Number: WAES 0906USA03443

PATIENT
  Age: 75 Year
  Sex: Male

DRUGS (6)
  1. ZETIA [Suspect]
     Indication: HYPERCHOLESTEROLAEMIA
     Dosage: 10 MG PO
     Route: 048
     Dates: start: 20081212
  2. AMLODIPINE BESYLATE [Concomitant]
  3. ASPIRIN [Concomitant]
  4. CILOSTAZOL [Concomitant]
  5. EPINASTINE HYDROCHLORIDE [Concomitant]
  6. FAMOTIDINE [Concomitant]

REACTIONS (1)
  - BLOOD GLUCOSE INCREASED [None]
